FAERS Safety Report 14890298 (Version 8)
Quarter: 2022Q4

REPORT INFORMATION
  Report Type: Spontaneous
  Country: US (occurrence: US)
  Receive Date: 20180514
  Receipt Date: 20221219
  Transmission Date: 20230113
  Serious: Yes (Other)
  Sender: FDA-Public Use
  Company Number: US-PFIZER INC-2018193315

PATIENT
  Age: 63 Year
  Sex: Female
  Weight: 82 kg

DRUGS (3)
  1. XELJANZ XR [Suspect]
     Active Substance: TOFACITINIB CITRATE
     Indication: Rheumatoid arthritis
     Dosage: 11 MG, 1X/DAY
     Dates: start: 20180531
  2. CELEBREX [Concomitant]
     Active Substance: CELECOXIB
     Indication: Rheumatoid arthritis
     Dosage: 200 MG, 2X/DAY
     Dates: start: 2001
  3. ULTRAM [Concomitant]
     Active Substance: TRAMADOL HYDROCHLORIDE
     Indication: Rheumatoid arthritis
     Dosage: 50 MG, (1-6/ DAY)
     Dates: start: 2001

REACTIONS (8)
  - Foot operation [Unknown]
  - Nerve injury [Unknown]
  - Hypertonic bladder [Unknown]
  - Ear infection [Unknown]
  - Infection [Unknown]
  - Cystitis [Unknown]
  - Disease recurrence [Unknown]
  - Fungal infection [Unknown]
